FAERS Safety Report 5831495-4 (Version None)
Quarter: 2008Q3

REPORT INFORMATION
  Report Type: 
  Country: None (occurrence: None)
  Receive Date: 20080801
  Receipt Date: 20080722
  Transmission Date: 20090109
  Serious: Yes (Hospitalization)
  Sender: FDA-Public Use
  Company Number: FR-PFIZER INC-2008061218

PATIENT
  Sex: Female

DRUGS (13)
  1. LYRICA [Suspect]
     Route: 048
  2. MONO-TILDIEM [Concomitant]
     Route: 048
  3. INNOHEP [Concomitant]
     Route: 058
     Dates: start: 20080605, end: 20080611
  4. RIVOTRIL [Concomitant]
     Route: 048
  5. COAPROVEL [Concomitant]
     Route: 048
  6. ZOPICLONE [Concomitant]
     Route: 048
  7. TOPALGIC [Concomitant]
     Route: 048
  8. LASIX [Concomitant]
     Route: 048
  9. METFORMIN HCL [Concomitant]
  10. FENOFIBRATE [Concomitant]
  11. TRINITRINE [Concomitant]
  12. NEXIUM [Concomitant]
  13. FEFOL [Concomitant]
     Route: 048

REACTIONS (3)
  - MYOCLONUS [None]
  - RENAL FAILURE [None]
  - TREMOR [None]
